FAERS Safety Report 16747618 (Version 1)
Quarter: 2019Q3

REPORT INFORMATION
  Report Type: Spontaneous
  Country: SE (occurrence: SE)
  Receive Date: 20190827
  Receipt Date: 20190827
  Transmission Date: 20191005
  Serious: Yes (Hospitalization)
  Sender: FDA-Public Use
  Company Number: SE-TEVA-2019-SE-1097182

PATIENT
  Age: 87 Year
  Sex: Female

DRUGS (13)
  1. TROMBYL 75 MG TABLETT [Concomitant]
     Active Substance: ASPIRIN
     Dates: start: 20171122
  2. DUOTRAV 40 MIKROGRAM/ML + 5 MG/ML OGONDROPPAR, L?SNING [Concomitant]
     Dates: start: 20171122
  3. LAXIDO APELSIN  PULVER TILL ORAL L?SNING [Concomitant]
     Dates: start: 20171122
  4. MIRTAZAPINE. [Suspect]
     Active Substance: MIRTAZAPINE
     Dates: start: 20180125, end: 20190715
  5. AMLODIPINE [Concomitant]
     Active Substance: AMLODIPINE BESYLATE
     Dates: start: 20171122
  6. ZOPICLONE [Concomitant]
     Active Substance: ZOPICLONE
     Dates: start: 20180125
  7. FURIX (FUROSEMIDE) [Suspect]
     Active Substance: FUROSEMIDE
     Dosage: 80 MILLIGRAM FOR EVERY 1 DAYS
     Dates: start: 20190514, end: 20190715
  8. BRINZOLAMIDE [Concomitant]
     Active Substance: BRINZOLAMIDE
     Dates: start: 20180911
  9. PANODIL 500 MG FILMDRAGERAD TABLETT [Concomitant]
     Active Substance: ACETAMINOPHEN
     Dates: start: 20190521
  10. DUROFERON 100 MG FE2+ DEPOTTABLETT [Concomitant]
     Dates: start: 20190416
  11. SALURES 2,5 MG TABLETT [Suspect]
     Active Substance: BENDROFLUMETHIAZIDE
     Route: 065
     Dates: start: 20171122, end: 20190715
  12. METOPROLOL. [Concomitant]
     Active Substance: METOPROLOL
     Dates: start: 20171122
  13. OMEPRAZOLE. [Concomitant]
     Active Substance: OMEPRAZOLE
     Dates: start: 20190704

REACTIONS (3)
  - Accidental overdose [Recovered/Resolved]
  - Hyponatraemia [Recovered/Resolved]
  - Accidental poisoning [Recovered/Resolved]

NARRATIVE: CASE EVENT DATE: 20190715
